FAERS Safety Report 5936780-3 (Version None)
Quarter: 2008Q4

REPORT INFORMATION
  Report Type: 
  Country: None (occurrence: None)
  Receive Date: 20081029
  Receipt Date: 20081022
  Transmission Date: 20090506
  Serious: Yes (Hospitalization, Other)
  Sender: FDA-Public Use
  Company Number: 2008SP015900

PATIENT
  Age: 53 Year
  Sex: Female
  Weight: 83.0083 kg

DRUGS (2)
  1. PEG-INTRON [Suspect]
     Indication: HEPATITIS C
     Dosage: 150 MCG; QW; SC
     Route: 058
     Dates: start: 20080731
  2. RIBAVIRIN [Suspect]
     Indication: HEPATITIS C
     Dosage: 1000 MG; QD; PO, 800 MG; QD; PO
     Route: 048
     Dates: start: 20080731

REACTIONS (22)
  - ABDOMINAL DISCOMFORT [None]
  - ABDOMINAL PAIN UPPER [None]
  - ANAEMIA [None]
  - CHROMATURIA [None]
  - DECREASED APPETITE [None]
  - DEHYDRATION [None]
  - DEPRESSION [None]
  - DIARRHOEA [None]
  - EATING DISORDER [None]
  - FAECES DISCOLOURED [None]
  - FATIGUE [None]
  - GINGIVAL PAIN [None]
  - HEADACHE [None]
  - ILL-DEFINED DISORDER [None]
  - INJECTION SITE ERYTHEMA [None]
  - INJECTION SITE OEDEMA [None]
  - MENTAL IMPAIRMENT [None]
  - MOOD SWINGS [None]
  - NAUSEA [None]
  - PEPTIC ULCER [None]
  - VOMITING [None]
  - WEIGHT DECREASED [None]
